FAERS Safety Report 7093625-9 (Version None)
Quarter: 2010Q4

REPORT INFORMATION
  Report Type: 
  Country: None (occurrence: None)
  Receive Date: 20101110
  Receipt Date: 20091002
  Transmission Date: 20110411
  Serious: No
  Sender: FDA-Public Use
  Company Number: US-KINGPHARMUSA00001-K200901219

PATIENT
  Age: 78 Year
  Sex: Female
  Weight: 55.329 kg

DRUGS (2)
  1. FLECTOR [Suspect]
     Indication: NECK PAIN
     Dosage: 1 PATCH, SINGLE
     Route: 061
     Dates: start: 20091001, end: 20091001
  2. FLECTOR [Suspect]
     Indication: MUSCULOSKELETAL PAIN

REACTIONS (1)
  - APPLICATION SITE IRRITATION [None]
